FAERS Safety Report 10135918 (Version 1)
Quarter: 2014Q2

REPORT INFORMATION
  Report Type: Spontaneous
  Country: US (occurrence: US)
  Receive Date: 20140428
  Receipt Date: 20140428
  Transmission Date: 20141212
  Serious: No
  Sender: FDA-Public Use
  Company Number: US-009507513-1404USA012920

PATIENT
  Age: 4 Year
  Sex: Male

DRUGS (2)
  1. CLARITIN [Suspect]
     Indication: PRODUCT USED FOR UNKNOWN INDICATION
     Dosage: 25 MG A DAY
     Route: 048
     Dates: end: 201404
  2. CLARITIN [Suspect]
     Dosage: 15MG
     Route: 048
     Dates: start: 201404

REACTIONS (4)
  - Eye swelling [Unknown]
  - Overdose [Unknown]
  - Overdose [Unknown]
  - Off label use [Unknown]
